FAERS Safety Report 15907059 (Version 1)
Quarter: 2019Q1

REPORT INFORMATION
  Report Type: Spontaneous
  Country: US (occurrence: US)
  Receive Date: 20190204
  Receipt Date: 20190204
  Transmission Date: 20190417
  Serious: No
  Sender: FDA-Public Use
  Company Number: US-PFIZER INC-2019051258

PATIENT
  Age: 45 Year
  Sex: Female

DRUGS (1)
  1. EUCRISA [Suspect]
     Active Substance: CRISABOROLE
     Dosage: UNK, 1X/DAY (AT BEDTIME)
     Route: 061

REACTIONS (3)
  - Acne [Not Recovered/Not Resolved]
  - Rash papular [Not Recovered/Not Resolved]
  - Product use issue [Unknown]
